FAERS Safety Report 7231677-3 (Version None)
Quarter: 2011Q1

REPORT INFORMATION
  Report Type: 
  Country: None (occurrence: None)
  Receive Date: 20110118
  Receipt Date: 20110105
  Transmission Date: 20110831
  Serious: Yes (Other)
  Sender: FDA-Public Use
  Company Number: JP-ELI_LILLY_AND_COMPANY-JP201101001221

PATIENT
  Age: 69 Year
  Sex: Female

DRUGS (3)
  1. GEMCITABINE HCL [Suspect]
     Dosage: 1000 MG/M2, OTHER
     Route: 042
  2. TS 1 [Concomitant]
     Indication: PANCREATIC CARCINOMA STAGE IV
     Dosage: 40 MG/M2, OTHER
     Route: 048
  3. GEMCITABINE HCL [Suspect]
     Indication: PANCREATIC CARCINOMA STAGE IV
     Dosage: 1000 MG/M2, OTHER
     Route: 042

REACTIONS (4)
  - NEOPLASM MALIGNANT [None]
  - CARDIAC FAILURE CHRONIC [None]
  - ATRIAL FIBRILLATION [None]
  - NEUTROPHIL COUNT DECREASED [None]
